FAERS Safety Report 6582004-6 (Version None)
Quarter: 2010Q1

REPORT INFORMATION
  Report Type: 
  Country: None (occurrence: None)
  Receive Date: 20100215
  Receipt Date: 20100203
  Transmission Date: 20100710
  Serious: Yes (Hospitalization)
  Sender: FDA-Public Use
  Company Number: US-MERCK-1002USA00671

PATIENT
  Age: 60 Year
  Sex: Female

DRUGS (2)
  1. SINGULAIR [Suspect]
     Indication: CHRONIC OBSTRUCTIVE PULMONARY DISEASE
     Route: 048
     Dates: start: 20090101, end: 20090101
  2. ADVAIR DISKUS 100/50 [Concomitant]
     Route: 065

REACTIONS (3)
  - BACK DISORDER [None]
  - PNEUMONIA [None]
  - RESPIRATORY FAILURE [None]
